FAERS Safety Report 8403007-2 (Version None)
Quarter: 2012Q2

REPORT INFORMATION
  Report Type: 
  Country: None (occurrence: None)
  Receive Date: 20120601
  Receipt Date: 20120529
  Transmission Date: 20120825
  Serious: Yes (Other)
  Sender: FDA-Public Use
  Company Number: US-PFIZER INC-2012094304

PATIENT
  Sex: Female
  Weight: 81.179 kg

DRUGS (35)
  1. PROTONIX [Concomitant]
     Indication: GASTROOESOPHAGEAL REFLUX DISEASE
     Dosage: 40 MG, 2X/DAY
  2. IPRATROPIUM [Concomitant]
     Indication: CHRONIC OBSTRUCTIVE PULMONARY DISEASE
     Dosage: UNK
  3. ALBUTEROL [Concomitant]
     Indication: ASTHMA
  4. AMARYL [Concomitant]
     Indication: TYPE 2 DIABETES MELLITUS
     Dosage: UNK
  5. ATENOLOL [Concomitant]
     Indication: HYPERTENSION
     Dosage: 5 UNK, UNK
  6. POTASSIUM CHLORIDE [Concomitant]
     Indication: HYPOKALAEMIA
     Dosage: 20 MEQ, DAILY
  7. IPRATROPIUM [Concomitant]
     Indication: EMPHYSEMA
  8. ALBUTEROL [Concomitant]
     Indication: EMPHYSEMA
  9. CHLORDIAZEPOXIDE HCL W/ CLIDINIUM BROMIDE [Concomitant]
     Indication: OESOPHAGEAL STENOSIS
     Dosage: 5/2.5 MG, UNK
  10. COMBIVENT [Concomitant]
     Indication: CHRONIC OBSTRUCTIVE PULMONARY DISEASE
     Dosage: UNK
  11. COMBIVENT [Concomitant]
     Indication: ASTHMA
  12. CALCIUM ACETATE [Concomitant]
     Indication: HYPOCALCAEMIA
     Dosage: 667 MG, DAILY
  13. VITAMIN D [Concomitant]
     Dosage: 50000 UNITS, MONTHLY
  14. VITAMIN B-12 [Concomitant]
     Dosage: UNK
  15. LYRICA [Suspect]
     Indication: NERVE INJURY
     Dosage: 150 MG, 2X/DAY
     Route: 048
  16. PLAQUENIL [Concomitant]
     Indication: SYSTEMIC LUPUS ERYTHEMATOSUS
     Dosage: 200 MG, 2X/DAY
  17. FUROSEMIDE [Concomitant]
     Indication: RENAL FAILURE
     Dosage: 40 MG, DAILY
  18. ALBUTEROL SULFATE [Concomitant]
     Indication: CHRONIC OBSTRUCTIVE PULMONARY DISEASE
     Dosage: UNK
  19. ALBUTEROL SULFATE [Concomitant]
     Indication: EMPHYSEMA
  20. FORADIL [Concomitant]
     Indication: EMPHYSEMA
  21. LYRICA [Suspect]
     Dosage: UNK
     Route: 048
  22. CYTOXAN [Concomitant]
     Indication: RENAL FAILURE
     Dosage: UNK
  23. HYDROCODONE [Concomitant]
     Indication: OSTEOARTHRITIS
     Dosage: UNK
  24. IPRATROPIUM [Concomitant]
     Indication: ASTHMA
  25. CHLORDIAZEPOXIDE HCL W/ CLIDINIUM BROMIDE [Concomitant]
     Indication: GASTROOESOPHAGEAL REFLUX DISEASE
     Dosage: UNK, 3X/DAY
  26. FORADIL [Concomitant]
     Indication: CHRONIC OBSTRUCTIVE PULMONARY DISEASE
     Dosage: 12 UG, 2X/DAY
  27. LYRICA [Suspect]
     Indication: FIBROMYALGIA
     Dosage: 75 MG, 4X/DAY
     Route: 048
     Dates: start: 20100601
  28. LASIX [Concomitant]
     Indication: RENAL FAILURE
     Dosage: UNK
  29. HYDROCODONE [Concomitant]
     Indication: PAIN
  30. ALBUTEROL [Concomitant]
     Indication: CHRONIC OBSTRUCTIVE PULMONARY DISEASE
     Dosage: UNK
  31. VITAMIN B COMPLEX CAP [Concomitant]
     Dosage: UNK
  32. GLIMEPIRIDE [Concomitant]
     Indication: DIABETES MELLITUS
     Dosage: 0.5 MG, DAILY
  33. RAMIPRIL [Suspect]
     Indication: HYPERTENSION
     Dosage: 10 MG, DAILY
  34. COMBIVENT [Concomitant]
     Indication: EMPHYSEMA
  35. FOLIC ACID [Concomitant]
     Dosage: UNK, 1X/DAY

REACTIONS (9)
  - INTERVERTEBRAL DISC PROTRUSION [None]
  - WRIST FRACTURE [None]
  - FALL [None]
  - WEIGHT INCREASED [None]
  - BODY HEIGHT DECREASED [None]
  - PALPITATIONS [None]
  - WEIGHT FLUCTUATION [None]
  - BACK INJURY [None]
  - EUPHORIC MOOD [None]
